FAERS Safety Report 7312605-9 (Version None)
Quarter: 2011Q1

REPORT INFORMATION
  Report Type: 
  Country: None (occurrence: None)
  Receive Date: 20110224
  Receipt Date: 20100405
  Transmission Date: 20110831
  Serious: No
  Sender: FDA-Public Use
  Company Number: US-MYLANLABS-2010S1005929

PATIENT
  Age: 65 Year
  Sex: Female

DRUGS (3)
  1. LISINOPRIL [Concomitant]
  2. ATENOLOL [Suspect]
     Route: 048
     Dates: start: 20100301
  3. ATENOLOL [Suspect]
     Indication: HYPERTENSION
     Route: 048
     Dates: end: 20100301

REACTIONS (2)
  - TACHYCARDIA [None]
  - BLOOD PRESSURE FLUCTUATION [None]
